FAERS Safety Report 9509844 (Version 2)
Quarter: 2013Q3

REPORT INFORMATION
  Report Type: Spontaneous
  Country: US (occurrence: US)
  Receive Date: 20130909
  Receipt Date: 20130909
  Transmission Date: 20140515
  Serious: No
  Sender: FDA-Public Use
  Company Number: US-BRISTOL-MYERS SQUIBB COMPANY-17097809

PATIENT
  Age: 30 Year
  Sex: Male

DRUGS (1)
  1. ABILIFY [Suspect]
     Dosage: TAKING FOR 3 YEARS

REACTIONS (3)
  - Adverse event [Unknown]
  - Drug ineffective [Unknown]
  - Agitation [Unknown]
